FAERS Safety Report 7929862-8 (Version None)
Quarter: 2011Q4

REPORT INFORMATION
  Report Type: 
  Country: None (occurrence: None)
  Receive Date: 20111116
  Receipt Date: 20111115
  Transmission Date: 20120403
  Serious: Yes (Disabling)
  Sender: FDA-Public Use
  Company Number: 1022556-2011-00030

PATIENT
  Sex: Male

DRUGS (1)
  1. ICY HOT NO MESS APPLICATOR 2.5 OZ [Suspect]
     Indication: MYALGIA
     Dosage: TOPICAL
     Route: 061

REACTIONS (3)
  - APPLICATION SITE SCAB [None]
  - APPLICATION SITE SCAR [None]
  - APPLICATION SITE PAIN [None]
